FAERS Safety Report 8138560-X (Version None)
Quarter: 2012Q1

REPORT INFORMATION
  Report Type: 
  Country: None (occurrence: None)
  Receive Date: 20120215
  Receipt Date: 20120207
  Transmission Date: 20120608
  Serious: Yes (Hospitalization)
  Sender: FDA-Public Use
  Company Number: FR-ROCHE-1038139

PATIENT
  Age: 40 Year
  Sex: Female

DRUGS (2)
  1. TAXOTERE [Suspect]
     Indication: BREAST CANCER METASTATIC
  2. HERCEPTIN [Suspect]
     Indication: BREAST CANCER METASTATIC

REACTIONS (5)
  - CONJUNCTIVITIS [None]
  - BURNING SENSATION [None]
  - ERYTHEMA [None]
  - ONYCHOMADESIS [None]
  - APHTHOUS STOMATITIS [None]
